FAERS Safety Report 13961106 (Version 1)
Quarter: 2017Q3

REPORT INFORMATION
  Report Type: Spontaneous
  Country: GB (occurrence: GB)
  Receive Date: 20170912
  Receipt Date: 20170912
  Transmission Date: 20171128
  Serious: Yes (Other)
  Sender: FDA-Public Use
  Company Number: GB-GLAXOSMITHKLINE-GB2017139888

PATIENT
  Age: 63 Year
  Sex: Female
  Weight: 58 kg

DRUGS (3)
  1. DICLOFENAC SODIUM. [Suspect]
     Active Substance: DICLOFENAC SODIUM
     Indication: PRODUCT USED FOR UNKNOWN INDICATION
     Dosage: UNK
     Route: 065
     Dates: start: 20170823
  2. MUPIROCIN. [Concomitant]
     Active Substance: MUPIROCIN
     Dosage: 1 DF, TID;APPLY TO THE INNER SURFACE OF...
     Route: 065
     Dates: start: 20170822, end: 20170823
  3. ESTRIOL [Concomitant]
     Active Substance: ESTRIOL
     Dosage: AS DIRECTED BY SPECIALIST
     Route: 065
     Dates: start: 20121030, end: 20170822

REACTIONS (1)
  - Hypersensitivity [Unknown]

NARRATIVE: CASE EVENT DATE: 20170830
